FAERS Safety Report 6377374-8 (Version None)
Quarter: 2009Q3

REPORT INFORMATION
  Report Type: 
  Country: None (occurrence: None)
  Receive Date: 20090923
  Receipt Date: 20090923
  Transmission Date: 20100115
  Serious: Yes (Hospitalization)
  Sender: FDA-Public Use
  Company Number: None

PATIENT
  Age: 77 Year
  Sex: Female

DRUGS (13)
  1. COUMADIN [Suspect]
     Indication: ATRIAL FIBRILLATION
     Dosage: 4.5MG, ALTERNATING DAYS
     Dates: start: 20090630
  2. COUMADIN [Suspect]
     Indication: ATRIAL FIBRILLATION
     Dosage: WITH 3MG
     Dates: start: 20090628, end: 20090630
  3. MULTIVITAMN [Concomitant]
  4. FUROSEMIDE [Concomitant]
  5. LANTUS [Concomitant]
  6. LEXAPRO [Concomitant]
  7. LISINOPRIL [Concomitant]
  8. METOPROLOL SUCCINATE [Concomitant]
  9. AMLODIPINE [Concomitant]
  10. NOVOLOG [Concomitant]
  11. DOCUSATE [Concomitant]
  12. SIMVASTATIN [Concomitant]
  13. DUODERM [Concomitant]

REACTIONS (9)
  - CARDIAC FAILURE CONGESTIVE [None]
  - CONDITION AGGRAVATED [None]
  - DECUBITUS ULCER [None]
  - EPISTAXIS [None]
  - INTERNATIONAL NORMALISED RATIO INCREASED [None]
  - OEDEMA PERIPHERAL [None]
  - PLEURAL EFFUSION [None]
  - RECTAL HAEMORRHAGE [None]
  - SKIN ULCER [None]
